FAERS Safety Report 24172576 (Version 3)
Quarter: 2025Q4

REPORT INFORMATION
  Report Type: Report from Study
  Country: IN (occurrence: IN)
  Receive Date: 20240805
  Receipt Date: 20251017
  Transmission Date: 20260119
  Serious: Yes (Other)
  Sender: ROCHE
  Company Number: IN-ROCHE-10000039900

PATIENT
  Sex: Male

DRUGS (14)
  1. POLATUZUMAB VEDOTIN [Suspect]
     Active Substance: POLATUZUMAB VEDOTIN
     Indication: Diffuse large B-cell lymphoma
     Dosage: STRENGTH: 1.8 MG/M2. FOR THE 3RD LINE SYSTEMIC TREATMENT
     Route: 065
     Dates: start: 20200801, end: 20210301
  2. RITUXIMAB [Suspect]
     Active Substance: RITUXIMAB
     Indication: Diffuse large B-cell lymphoma
     Dosage: 1ST LINE OF TREATMENT: R-CHOP
     Route: 065
     Dates: start: 20110501, end: 20111201
  3. RITUXIMAB [Suspect]
     Active Substance: RITUXIMAB
     Dosage: DOSE: 375 MG/M2. SECOND LINE OF TREATMENT: R-MINE
     Route: 042
     Dates: start: 20160601, end: 20170201
  4. RITUXIMAB [Suspect]
     Active Substance: RITUXIMAB
     Dosage: DOSE: 375 MG/M2. SECOND LINE OF TREATMENT: R-MINE. 3RD SYSTEMIC TREATMENT P-BR, D2.
     Route: 042
     Dates: start: 20200801, end: 20210301
  5. COLUMVI [Suspect]
     Active Substance: GLOFITAMAB-GXBM
     Indication: Diffuse large B-cell lymphoma
     Route: 065
  6. BENDAMUSTINE [Suspect]
     Active Substance: BENDAMUSTINE
     Indication: Diffuse large B-cell lymphoma
     Route: 065
     Dates: start: 20200801, end: 20210301
  7. CYCLOPHOSPHAMIDE [Suspect]
     Active Substance: CYCLOPHOSPHAMIDE
     Indication: Diffuse large B-cell lymphoma
     Route: 065
     Dates: start: 20110501, end: 20111201
  8. DOXORUBICIN HYDROCHLORIDE [Suspect]
     Active Substance: DOXORUBICIN HYDROCHLORIDE
     Indication: Diffuse large B-cell lymphoma
     Route: 065
     Dates: start: 20110501, end: 20111201
  9. VINCRISTINE SULFATE [Suspect]
     Active Substance: VINCRISTINE SULFATE
     Indication: Diffuse large B-cell lymphoma
     Route: 065
     Dates: start: 20110501, end: 20111201
  10. PREDNISONE [Suspect]
     Active Substance: PREDNISONE
     Indication: Diffuse large B-cell lymphoma
     Route: 065
     Dates: start: 20110501, end: 20111201
  11. IFOSFAMIDE [Suspect]
     Active Substance: IFOSFAMIDE
     Indication: Diffuse large B-cell lymphoma
     Dosage: STRENGTH: 1330MG/M2. 2ND SYSTEMIC TREATMENT.
     Route: 065
     Dates: start: 20160601, end: 20170201
  12. MITOXANTRONE [Suspect]
     Active Substance: MITOXANTRONE HYDROCHLORIDE
     Indication: Diffuse large B-cell lymphoma
     Dosage: STRENGTH:8 MG/M2. 2ND SYSTEMIC TREATMENT.
     Route: 065
     Dates: start: 20160601, end: 20170201
  13. ETOPOSIDE [Suspect]
     Active Substance: ETOPOSIDE
     Indication: Diffuse large B-cell lymphoma
     Dosage: STRENGTH: 65 MG/M2.
     Route: 065
     Dates: start: 20160601, end: 20170201
  14. BENDAMUSTINE [Suspect]
     Active Substance: BENDAMUSTINE
     Indication: Diffuse large B-cell lymphoma
     Dosage: STRENGTH: 90 MG/M2. D2, D3. 3RD SYSTEMIC TREATMENT.
     Route: 065
     Dates: start: 20200801, end: 20210301

REACTIONS (3)
  - Disease progression [Unknown]
  - Off label use [Unknown]
  - Infection [Unknown]
